FAERS Safety Report 9682602 (Version 1)
Quarter: 2013Q4

REPORT INFORMATION
  Report Type: Spontaneous
  Country: US (occurrence: US)
  Receive Date: 20131112
  Receipt Date: 20131112
  Transmission Date: 20140711
  Serious: Yes (Hospitalization)
  Sender: FDA-Public Use
  Company Number: US-SUN PHARMACEUTICAL INDUSTRIES LTD-2013SUN05013

PATIENT
  Age: 41 Year
  Sex: Female

DRUGS (3)
  1. DIVALPROEX SODIUM DR TABS 250MG [Suspect]
     Indication: EPILEPSY
     Dosage: 750 MG, DAILY
     Route: 065
  2. TIAGABINE HYDROCHLORIDE TABLETS 4MG [Suspect]
     Indication: EPILEPSY
     Dosage: 40 MG DAILY (12 MG IN THE MORNING, 12 MG AT NOON AND 16 MG AT NIGHT)
     Route: 065
  3. FLUOXETINE [Concomitant]
     Dosage: 10 MG PER DAY
     Route: 065

REACTIONS (2)
  - Status epilepticus [Recovered/Resolved]
  - Toxic encephalopathy [Recovered/Resolved]
